FAERS Safety Report 15978404 (Version 9)
Quarter: 2022Q2

REPORT INFORMATION
  Report Type: Other
  Country: CA (occurrence: CA)
  Receive Date: 20190219
  Receipt Date: 20220425
  Transmission Date: 20220721
  Serious: Yes (Other)
  Sender: FDA-Public Use
  Company Number: CA-002147023-PHHY2019CA027325

PATIENT
  Age: 42 Year
  Sex: Female
  Weight: 103 kg

DRUGS (9)
  1. XOLAIR [Suspect]
     Active Substance: OMALIZUMAB
     Indication: Chronic spontaneous urticaria
     Route: 058
     Dates: start: 20190131
  2. XOLAIR [Suspect]
     Active Substance: OMALIZUMAB
     Route: 058
     Dates: start: 20190228
  3. XOLAIR [Suspect]
     Active Substance: OMALIZUMAB
     Route: 058
     Dates: start: 20190718
  4. XOLAIR [Suspect]
     Active Substance: OMALIZUMAB
     Route: 058
     Dates: start: 20191017
  5. CETIRIZINE [Concomitant]
     Active Substance: CETIRIZINE HYDROCHLORIDE
     Indication: Chronic spontaneous urticaria
     Route: 048
     Dates: start: 20181220
  6. ESCITALOPRAM OXALATE [Concomitant]
     Active Substance: ESCITALOPRAM OXALATE
     Indication: Depression
     Route: 048
     Dates: start: 201809
  7. RANITIDINE [Concomitant]
     Active Substance: RANITIDINE
     Indication: Chronic spontaneous urticaria
     Route: 048
     Dates: start: 201809
  8. PANTOPRAZOLE [Concomitant]
     Active Substance: PANTOPRAZOLE
     Indication: Dyspepsia
     Dosage: 1 DF, BID
     Route: 048
     Dates: start: 201809
  9. MONTELUKAST [Concomitant]
     Active Substance: MONTELUKAST SODIUM
     Indication: Chronic spontaneous urticaria
     Dosage: 1 DF, QD
     Route: 048
     Dates: start: 20181220

REACTIONS (15)
  - Haematochezia [Recovered/Resolved]
  - Feeling hot [Unknown]
  - Weight decreased [Unknown]
  - Fatigue [Unknown]
  - Food poisoning [Recovered/Resolved]
  - Nausea [Recovered/Resolved]
  - Vomiting [Recovered/Resolved]
  - Dizziness [Unknown]
  - Alopecia [Unknown]
  - Papule [Unknown]
  - Weight increased [Unknown]
  - Headache [Recovered/Resolved]
  - Nasopharyngitis [Unknown]
  - Oropharyngeal pain [Unknown]
  - Urticaria [Recovered/Resolved]

NARRATIVE: CASE EVENT DATE: 20190131
